FAERS Safety Report 17830881 (Version 5)
Quarter: 2021Q4

REPORT INFORMATION
  Report Type: Report from Study
  Country: US (occurrence: US)
  Receive Date: 20200527
  Receipt Date: 20211103
  Transmission Date: 20220303
  Serious: Yes (Hospitalization, Other)
  Sender: FDA-Public Use
  Company Number: US-BRISTOL-MYERS SQUIBB COMPANY-BMS-2020-039677

PATIENT
  Age: 50 Year
  Sex: Male
  Weight: 98 kg

DRUGS (15)
  1. INVESTIGATIONAL PRODUCT [Suspect]
     Active Substance: INVESTIGATIONAL PRODUCT
     Indication: Metastatic malignant melanoma
     Dosage: 0.57 MILLIGRAM
     Route: 042
     Dates: start: 20200423
  2. NIVOLUMAB [Suspect]
     Active Substance: NIVOLUMAB
     Indication: Metastatic malignant melanoma
     Dosage: 360 MILLIGRAM
     Route: 042
     Dates: start: 20200423
  3. TYLENOL [Concomitant]
     Active Substance: ACETAMINOPHEN
     Indication: Pain
     Dosage: 2000 MILLIGRAM PRN
     Route: 048
     Dates: start: 20200303
  4. TYLENOL [Concomitant]
     Active Substance: ACETAMINOPHEN
     Indication: Adverse event
  5. DILAUDID [Concomitant]
     Active Substance: HYDROMORPHONE HYDROCHLORIDE
     Indication: Pain management
     Dosage: 1 MILLIGRAM
     Route: 042
     Dates: start: 20200501
  6. DILAUDID [Concomitant]
     Active Substance: HYDROMORPHONE HYDROCHLORIDE
     Dosage: 3 MILLIGRAM
     Route: 042
     Dates: start: 20200515, end: 20200516
  7. ADVIL [Concomitant]
     Active Substance: IBUPROFEN
     Indication: Adverse event
     Dosage: 1800 MILLIGRAM PRN
     Route: 048
     Dates: start: 20200303
  8. ADVIL [Concomitant]
     Active Substance: IBUPROFEN
     Indication: Pain
  9. ROXICODONE [Concomitant]
     Active Substance: OXYCODONE HYDROCHLORIDE
     Indication: Pain
     Dosage: 30 MILLIGRAM PRN
     Route: 048
     Dates: start: 20200310
  10. ROXICODONE [Concomitant]
     Active Substance: OXYCODONE HYDROCHLORIDE
     Indication: Adverse event
  11. GADAVIST [Concomitant]
     Active Substance: GADOBUTROL
     Indication: Product used for unknown indication
     Dosage: 1 DOSAGE FORM = 9.5 UNIT NOS
     Route: 042
     Dates: start: 20200501
  12. MORPHINE [Concomitant]
     Active Substance: MORPHINE
     Indication: Product used for unknown indication
     Dosage: 2 MILLIGRAM
     Route: 030
     Dates: start: 20200514
  13. NEURONTIN [Concomitant]
     Active Substance: GABAPENTIN
     Indication: Product used for unknown indication
     Dosage: 900 MILLIGRAM
     Route: 048
     Dates: start: 20200514, end: 20200515
  14. OMNIPAQUE [Concomitant]
     Active Substance: IOHEXOL
     Indication: Product used for unknown indication
     Dosage: 1 DOSAGE FORM = 300 UNIT NOS
     Route: 042
     Dates: start: 20200515
  15. SODIUM CHLORIDE [Concomitant]
     Active Substance: SODIUM CHLORIDE
     Indication: Pyrexia
     Dosage: 1 DOSAGE FORM
     Route: 042
     Dates: start: 20200515

REACTIONS (2)
  - Groin pain [Recovered/Resolved]
  - Pain in extremity [Recovered/Resolved]

NARRATIVE: CASE EVENT DATE: 20200515
